FAERS Safety Report 4389580-2 (Version None)
Quarter: 2004Q2

REPORT INFORMATION
  Report Type: 
  Country: None (occurrence: None)
  Receive Date: 20040629
  Receipt Date: 20040311
  Transmission Date: 20050107
  Serious: Yes (Hospitalization, Other)
  Sender: FDA-Public Use
  Company Number: US-JNJFOC-20040206070

PATIENT
  Age: 78 Year
  Sex: Female

DRUGS (5)
  1. DURAGESIC [Suspect]
     Dosage: 75 UG/HR, 1 IN 72 HOUR, TRANSDERMAL; 75 UG/HR, 1 IN 48 HOUR, TRANSDERMAL
     Route: 062
     Dates: start: 20030901, end: 20040105
  2. DURAGESIC [Suspect]
     Dosage: 75 UG/HR, 1 IN 72 HOUR, TRANSDERMAL; 75 UG/HR, 1 IN 48 HOUR, TRANSDERMAL
     Route: 062
     Dates: start: 20040105
  3. METHADONE HCL [Suspect]
     Dosage: 5 MG, 3 IN 1 DAY, ORAL
     Route: 048
     Dates: start: 20040107
  4. ELAVIL [Concomitant]
  5. NEURONTIN [Concomitant]

REACTIONS (2)
  - COMA [None]
  - SEDATION [None]
